FAERS Safety Report 6266969-8 (Version None)
Quarter: 2009Q3

REPORT INFORMATION
  Report Type: 
  Country: None (occurrence: None)
  Receive Date: 20090714
  Receipt Date: 20090708
  Transmission Date: 20100115
  Serious: Yes (Hospitalization)
  Sender: FDA-Public Use
  Company Number: AU-ROCHE-642670

PATIENT
  Sex: Female
  Weight: 66 kg

DRUGS (8)
  1. VALIUM [Suspect]
     Indication: DRUG USE FOR UNKNOWN INDICATION
     Route: 048
     Dates: end: 20080627
  2. MERSYNDOL [Suspect]
     Indication: DRUG USE FOR UNKNOWN INDICATION
     Route: 065
  3. SEROQUEL [Suspect]
     Indication: DRUG USE FOR UNKNOWN INDICATION
     Route: 065
  4. ZOLPIDEM TARTRATE [Suspect]
     Indication: SLEEP DISORDER
     Route: 048
     Dates: start: 20080619, end: 20080626
  5. LEXAPRO [Suspect]
     Indication: DRUG USE FOR UNKNOWN INDICATION
     Route: 048
     Dates: end: 20080627
  6. ALCOHOL [Suspect]
     Indication: DRUG USE FOR UNKNOWN INDICATION
     Route: 065
  7. CALTRATE [Concomitant]
     Dosage: DRUG REPORTED AS: CALTRATE 600
  8. FISH OIL [Concomitant]
     Dosage: DRUG: FISH OIL (NOS)

REACTIONS (5)
  - ABNORMAL SLEEP-RELATED EVENT [None]
  - FLUSHING [None]
  - MYDRIASIS [None]
  - SOMNAMBULISM [None]
  - SOMNOLENCE [None]
